FAERS Safety Report 9519538 (Version 1)
Quarter: 2013Q3

REPORT INFORMATION
  Report Type: Spontaneous
  Country: IE (occurrence: IE)
  Receive Date: 20130912
  Receipt Date: 20130912
  Transmission Date: 20140515
  Serious: Yes (Other)
  Sender: FDA-Public Use
  Company Number: IE-WATSON-2013-15700

PATIENT
  Age: 53 Year
  Sex: Female

DRUGS (5)
  1. ROPINIROLE (UNKNOWN) [Suspect]
     Indication: PARKINSON^S DISEASE
     Dosage: 8 MG, DAILY
     Route: 065
  2. STALEVO [Concomitant]
     Indication: PARKINSON^S DISEASE
     Dosage: 75 MG, TID
     Route: 065
  3. STALEVO [Concomitant]
     Dosage: 75 MG, FIVE TIMES DAILY
     Route: 065
  4. AMANTADINE [Concomitant]
     Indication: PARKINSON^S DISEASE
     Dosage: 100 MG, TID
     Route: 065
  5. RASAGILINE [Concomitant]
     Indication: PARKINSON^S DISEASE
     Dosage: 1 MG, DAILY
     Route: 065

REACTIONS (4)
  - Hypersexuality [Recovering/Resolving]
  - Compulsive shopping [Not Recovered/Not Resolved]
  - Suicidal ideation [Recovering/Resolving]
  - Feeling guilty [Recovering/Resolving]
